FAERS Safety Report 4638238-0 (Version None)
Quarter: 2005Q2

REPORT INFORMATION
  Report Type: 
  Country: None (occurrence: None)
  Receive Date: 20050415
  Receipt Date: 20050328
  Transmission Date: 20051028
  Serious: Yes (Other)
  Sender: FDA-Public Use
  Company Number: USA050394335

PATIENT
  Age: 66 Year
  Sex: Male

DRUGS (17)
  1. CYMBALTA [Suspect]
     Indication: DEPRESSION
     Dosage: 60 MG DAY
     Dates: start: 20040101
  2. WELLBUTRIN SR [Concomitant]
  3. LIPITOR [Concomitant]
  4. LISINOPRIL [Concomitant]
  5. HYDROCHLOROTHIAZIDE [Concomitant]
  6. POTASSIUM CHLORIDE [Concomitant]
  7. ZETIA [Concomitant]
  8. MULTI-VITAMIN [Concomitant]
  9. VITAMIN E [Concomitant]
  10. VITAMIN C [Concomitant]
  11. GLUCOSAMINE W/CHONDROITIN [Concomitant]
  12. SAW PALMETTO [Concomitant]
  13. PROSTATE [Concomitant]
  14. SOMA [Concomitant]
  15. LEXAPRO [Concomitant]
  16. CALCIUM GLUCONATE [Concomitant]
  17. NITROQUICK (GLYCERYL TRINITRATE) [Concomitant]

REACTIONS (11)
  - CONVULSION [None]
  - COUGH [None]
  - DYSPHAGIA [None]
  - HYPERHIDROSIS [None]
  - MEMORY IMPAIRMENT [None]
  - NEOPLASM MALIGNANT [None]
  - PARAESTHESIA [None]
  - SINUSITIS [None]
  - SURGERY [None]
  - THINKING ABNORMAL [None]
  - TREMOR [None]
